FAERS Safety Report 12471296 (Version 2)
Quarter: 2016Q3

REPORT INFORMATION
  Report Type: Spontaneous
  Country: US (occurrence: US)
  Receive Date: 20160616
  Receipt Date: 20160819
  Transmission Date: 20161109
  Serious: Yes (Other)
  Sender: FDA-Public Use
  Company Number: US-PFIZER INC-2016276875

PATIENT
  Age: 60 Year
  Sex: Female

DRUGS (2)
  1. GABAPENTIN. [Suspect]
     Active Substance: GABAPENTIN
     Indication: SEIZURE
     Dosage: 10 MG, 3X/DAY
     Dates: start: 20160318
  2. GABAPENTIN. [Suspect]
     Active Substance: GABAPENTIN
     Indication: NEURALGIA

REACTIONS (4)
  - Cognitive disorder [Recovered/Resolved]
  - Feeling abnormal [Recovered/Resolved]
  - Retinal exudates [Unknown]
  - Nausea [Unknown]

NARRATIVE: CASE EVENT DATE: 20160318
